FAERS Safety Report 9013630 (Version 1)
Quarter: 2013Q1

REPORT INFORMATION
  Report Type: Spontaneous
  Country: US (occurrence: US)
  Receive Date: 20130115
  Receipt Date: 20130115
  Transmission Date: 20140127
  Serious: Yes (Other)
  Sender: FDA-Public Use
  Company Number: PHEH2013US000994

PATIENT
  Sex: Female

DRUGS (14)
  1. DIOVAN HCT [Suspect]
     Dosage: 1 DF, (320 MG VALS, 12.5 MG HYDR)
  2. NAPROXEN [Suspect]
  3. LYRICA [Suspect]
     Indication: MULTIPLE SCLEROSIS
  4. LASIX [Concomitant]
     Dosage: 40 MG, DAILY
  5. COREG [Concomitant]
     Dosage: 6.25 MG, BID
  6. EFFEXOR [Concomitant]
     Dosage: 150 MG, QD
  7. FLEXERIL [Concomitant]
     Dosage: 10 MG, QD
  8. KLOR-CON [Concomitant]
     Dosage: 20 MG, QD
  9. BUTRANS//BUPRENORPHINE [Concomitant]
     Indication: PAIN
     Dosage: 5 UG, PER WEEK
     Route: 062
  10. SYNTHROID [Concomitant]
     Dosage: 50 UG, A DAY
  11. VALIUM [Concomitant]
     Dosage: 5 MG, PRN (1 OR 2 A DAY)
  12. ZANAFLEX [Concomitant]
     Dosage: 4 MG, ONE A DAY
  13. ZONISAMIDE [Concomitant]
     Dosage: 50 MG, QD
  14. ZYRTEC [Concomitant]
     Dosage: 10 MG, ONCE A DAY

REACTIONS (5)
  - Loss of consciousness [Unknown]
  - Blood electrolytes decreased [Unknown]
  - Disorientation [Unknown]
  - Blood potassium decreased [Unknown]
  - Blood sodium decreased [Unknown]
